FAERS Safety Report 5016877-5 (Version None)
Quarter: 2006Q2

REPORT INFORMATION
  Report Type: 
  Country: None (occurrence: None)
  Receive Date: 20060526
  Receipt Date: 20060515
  Transmission Date: 20061013
  Serious: Yes (Death)
  Sender: FDA-Public Use
  Company Number: 2005BH001572

PATIENT
  Age: 70 Year
  Sex: Female

DRUGS (1)
  1. POTASSIUM CHLORIDE [Suspect]
     Indication: BLOOD POTASSIUM
     Dates: start: 20050809

REACTIONS (2)
  - CARDIAC ARREST [None]
  - HYPOKALAEMIA [None]
